FAERS Safety Report 6334727-1 (Version None)
Quarter: 2009Q3

REPORT INFORMATION
  Report Type: 
  Country: None (occurrence: None)
  Receive Date: 20090831
  Receipt Date: 20090819
  Transmission Date: 20100115
  Serious: Yes (Death, Hospitalization, Disabling, Other)
  Sender: FDA-Public Use
  Company Number: JP-PFIZER INC-2009229986

PATIENT
  Age: 88 Year

DRUGS (23)
  1. ZYVOX [Suspect]
     Indication: PNEUMONIA STAPHYLOCOCCAL
     Dosage: UNK
     Route: 042
     Dates: start: 20090608, end: 20090617
  2. CEFOPERAZONE SODIUM/SULBACTAM SODIUM [Concomitant]
     Dosage: UNK
     Route: 042
     Dates: start: 20090608, end: 20090618
  3. PRODIF [Concomitant]
     Route: 042
     Dates: start: 20090604, end: 20090611
  4. SOLU-MEDROL [Concomitant]
     Route: 042
     Dates: start: 20090608, end: 20090617
  5. HEPARIN SODIUM [Concomitant]
     Dosage: UNK
     Dates: start: 20090514, end: 20090618
  6. PROPOFOL [Concomitant]
     Dosage: UNK
     Route: 042
     Dates: start: 20090606, end: 20090618
  7. HICALIQ [Concomitant]
  8. MINERALIN [Concomitant]
  9. MVI NEO 9 [Concomitant]
  10. MULTI-VITAMINS [Concomitant]
  11. AMINO ACIDS [Concomitant]
  12. HANP [Concomitant]
  13. DOPAMINE HYDROCHLORIDE [Concomitant]
     Dosage: UNK
     Route: 042
     Dates: start: 20090509, end: 20090619
  14. MEYLON [Concomitant]
  15. ALTAT [Concomitant]
  16. LASIX [Concomitant]
     Dosage: UNK
     Route: 042
     Dates: start: 20090524, end: 20090618
  17. ISONIAZID [Concomitant]
     Dosage: UNK
     Route: 048
     Dates: start: 20090420, end: 20090618
  18. CARPERITIDE [Concomitant]
     Dosage: UNK
     Route: 042
     Dates: start: 20090514, end: 20090618
  19. POTASSIUM CHLORIDE [Concomitant]
     Dosage: UNK
     Route: 042
     Dates: start: 20090514, end: 20090608
  20. MEROPENEM [Concomitant]
     Dosage: UNK
     Route: 042
     Dates: start: 20090602, end: 20090608
  21. ALBUMIN HUMAN [Concomitant]
     Dosage: UNK
     Route: 042
     Dates: start: 20090601, end: 20090610
  22. IMMUNOGLOBULIN G HUMAN [Concomitant]
     Dosage: UNK
     Dates: start: 20090601, end: 20090603
  23. VANCOMYCIN [Concomitant]
     Dosage: UNK
     Dates: start: 20090601, end: 20090608

REACTIONS (3)
  - DERMATITIS BULLOUS [None]
  - PNEUMONIA [None]
  - SEPSIS [None]
